FAERS Safety Report 7455242-8 (Version None)
Quarter: 2011Q2

REPORT INFORMATION
  Report Type: 
  Country: None (occurrence: None)
  Receive Date: 20110503
  Receipt Date: 20110420
  Transmission Date: 20111010
  Serious: Yes (Other)
  Sender: FDA-Public Use
  Company Number: US-ELI_LILLY_AND_COMPANY-US201009001749

PATIENT
  Sex: Female
  Weight: 49.887 kg

DRUGS (2)
  1. FORTEO [Suspect]
     Indication: OSTEOPOROSIS
     Dosage: 20 UG, DAILY (1/D)
     Dates: start: 20100819
  2. FORTEO [Suspect]
     Dosage: 20 UG, DAILY (1/D)

REACTIONS (9)
  - SPINAL DISORDER [None]
  - FATIGUE [None]
  - SLEEP DISORDER [None]
  - ASTHENIA [None]
  - LUNG DISORDER [None]
  - CHEMOTHERAPY [None]
  - LIVER DISORDER [None]
  - MUSCULAR WEAKNESS [None]
  - DIZZINESS [None]
